FAERS Safety Report 7271482-5 (Version None)
Quarter: 2011Q1

REPORT INFORMATION
  Report Type: 
  Country: None (occurrence: None)
  Receive Date: 20110125
  Receipt Date: 20110125
  Transmission Date: 20110831
  Serious: No
  Sender: FDA-Public Use
  Company Number: None

PATIENT
  Age: 28 Year
  Sex: Female

DRUGS (1)
  1. LETROZOLE [Suspect]
     Dates: start: 20090531, end: 20090604

REACTIONS (8)
  - LIVER INJURY [None]
  - ABORTION SPONTANEOUS [None]
  - CHOLECYSTITIS CHRONIC [None]
  - PREGNANCY [None]
  - CHOLESTASIS [None]
  - CHOLELITHIASIS [None]
  - TWIN PREGNANCY [None]
  - CHOLECYSTITIS ACUTE [None]
